FAERS Safety Report 17909998 (Version 3)
Quarter: 2021Q2

REPORT INFORMATION
  Report Type: Spontaneous
  Country: US (occurrence: US)
  Receive Date: 20200617
  Receipt Date: 20210629
  Transmission Date: 20210717
  Serious: Yes (Other)
  Sender: FDA-Public Use
  Company Number: US-TEVA-2020-US-1510559

PATIENT
  Age: 37 Year
  Sex: Male

DRUGS (3)
  1. METHIMAZOLE. [Interacting]
     Active Substance: METHIMAZOLE
     Indication: BASEDOW^S DISEASE
     Dosage: THERAPY INITIATED SIX WEEKS PRIOR TO PRESENTATION
     Route: 065
  2. METHYLPREDNISOLONE. [Suspect]
     Active Substance: METHYLPREDNISOLONE
     Indication: BASEDOW^S DISEASE
     Route: 065
  3. PROPYLTHIOURACIL. [Interacting]
     Active Substance: PROPYLTHIOURACIL
     Indication: BASEDOW^S DISEASE
     Route: 065

REACTIONS (3)
  - Drug interaction [Recovered/Resolved]
  - Drug-induced liver injury [Recovered/Resolved]
  - Product administration error [Unknown]
